FAERS Safety Report 21728754 (Version 1)
Quarter: 2022Q4

REPORT INFORMATION
  Report Type: Report from Study
  Country: US (occurrence: US)
  Receive Date: 20221214
  Receipt Date: 20221214
  Transmission Date: 20230113
  Serious: Yes (Hospitalization, Other)
  Sender: FDA-Public Use
  Company Number: US-TAKEDA-2022TUS018010

PATIENT
  Sex: Female
  Weight: 68 kg

DRUGS (30)
  1. .ALPHA.1-PROTEINASE INHIBITOR HUMAN [Suspect]
     Active Substance: .ALPHA.1-PROTEINASE INHIBITOR HUMAN
     Indication: Alpha-1 antitrypsin deficiency
     Dosage: 60 MILLIGRAM/KILOGRAM, 1/WEEK
     Route: 042
     Dates: start: 20211207
  2. .ALPHA.1-PROTEINASE INHIBITOR HUMAN [Suspect]
     Active Substance: .ALPHA.1-PROTEINASE INHIBITOR HUMAN
     Indication: Alpha-1 antitrypsin deficiency
     Dosage: 60 MILLIGRAM/KILOGRAM, 1/WEEK
     Route: 042
     Dates: start: 20211207
  3. HEPARIN [Concomitant]
     Active Substance: HEPARIN SODIUM
  4. DIPHENHYDRAMINE [Concomitant]
     Active Substance: DIPHENHYDRAMINE
  5. BUDESONIDE [Concomitant]
     Active Substance: BUDESONIDE
  6. MUCINEX [Concomitant]
     Active Substance: GUAIFENESIN
  7. ALBUTEROL SULFATE [Concomitant]
     Active Substance: ALBUTEROL SULFATE
  8. EPINEPHRINE [Concomitant]
     Active Substance: EPINEPHRINE
  9. SODIUM CHLORIDE [Concomitant]
     Active Substance: SODIUM CHLORIDE
  10. AMLODIPINE BESYLATE [Concomitant]
     Active Substance: AMLODIPINE BESYLATE
  11. TYLENOL ARTHRITIS PAIN [Concomitant]
     Active Substance: ACETAMINOPHEN
  12. LIDOCAINE AND PRILOCAINE [Concomitant]
     Active Substance: LIDOCAINE\PRILOCAINE
  13. SPIRIVA RESPIMAT [Concomitant]
     Active Substance: TIOTROPIUM BROMIDE
  14. ALKA-SELTZER [Concomitant]
     Active Substance: ANHYDROUS CITRIC ACID\ASPIRIN\SODIUM BICARBONATE
  15. MELATONIN [Concomitant]
     Active Substance: MELATONIN
  16. THEOPHYLLINE ANHYDROUS [Concomitant]
     Active Substance: THEOPHYLLINE ANHYDROUS
  17. TRIAMCINOLONE ACETONIDE [Concomitant]
     Active Substance: TRIAMCINOLONE ACETONIDE
  18. LORATADINE [Concomitant]
     Active Substance: LORATADINE
  19. AFLURIA QUAD [Concomitant]
  20. OXYGEN [Concomitant]
     Active Substance: OXYGEN
  21. ALBUTEROL SULFATE [Concomitant]
     Active Substance: ALBUTEROL SULFATE
  22. BROVANA [Concomitant]
     Active Substance: ARFORMOTEROL TARTRATE
  23. FISH OIL [Concomitant]
     Active Substance: FISH OIL
  24. LASIX [Concomitant]
     Active Substance: FUROSEMIDE
     Route: 065
  25. ROPINIROLE HYDROCHLORIDE [Concomitant]
     Active Substance: ROPINIROLE HYDROCHLORIDE
  26. MAGNESIUM [Concomitant]
     Active Substance: MAGNESIUM
  27. SORE THROAT LOZENGES [Concomitant]
  28. VITAMIN C [Concomitant]
     Active Substance: ASCORBIC ACID
  29. HYDROXYZINE HYDROCHLORIDE [Concomitant]
     Active Substance: HYDROXYZINE HYDROCHLORIDE
  30. PAXIL [Concomitant]
     Active Substance: PAROXETINE HYDROCHLORIDE

REACTIONS (7)
  - Pneumothorax [Unknown]
  - Oral candidiasis [Unknown]
  - Ear, nose and throat infection [Unknown]
  - Respiratory tract infection [Unknown]
  - Condition aggravated [Unknown]
  - Bronchitis [Unknown]
  - Product dose omission issue [Unknown]
